FAERS Safety Report 20313569 (Version 2)
Quarter: 2022Q1

REPORT INFORMATION
  Report Type: Report from Study
  Country: US (occurrence: US)
  Receive Date: 20220109
  Receipt Date: 20220225
  Transmission Date: 20220424
  Serious: No
  Sender: FDA-Public Use
  Company Number: US-SA-SAC20220102000112

PATIENT
  Sex: Female

DRUGS (7)
  1. DUPIXENT [Suspect]
     Active Substance: DUPILUMAB
     Indication: Dermatitis atopic
     Dosage: 600 MG, 1X
  2. DUPIXENT [Suspect]
     Active Substance: DUPILUMAB
     Dosage: 300 MG, QOW
     Route: 058
  3. DUPIXENT [Suspect]
     Active Substance: DUPILUMAB
     Dosage: 600MG, 1X
     Route: 058
     Dates: start: 20210329, end: 20210329
  4. DUPIXENT [Suspect]
     Active Substance: DUPILUMAB
     Dosage: 300MG QOW
     Route: 058
     Dates: start: 20210412
  5. AMITRIPTYLINE [Concomitant]
     Active Substance: AMITRIPTYLINE
     Dosage: UNK
  6. VITAMINS NOS [Concomitant]
     Active Substance: VITAMINS
     Dosage: UNK
  7. NEOSPORIN [NEOMYCIN SULFATE;POLYMYXIN B SULFATE] [Concomitant]

REACTIONS (3)
  - Product dose omission issue [Unknown]
  - Injection site erythema [Unknown]
  - Dry skin [Unknown]
